FAERS Safety Report 16070540 (Version 1)
Quarter: 2019Q1

REPORT INFORMATION
  Report Type: Spontaneous
  Country: US (occurrence: US)
  Receive Date: 20190314
  Receipt Date: 20190314
  Transmission Date: 20190418
  Serious: Yes (Other)
  Sender: FDA-Public Use
  Company Number: US-ROCHE-2280769

PATIENT
  Sex: Female
  Weight: 44.95 kg

DRUGS (1)
  1. LUCENTIS [Suspect]
     Active Substance: RANIBIZUMAB
     Indication: PRODUCT USED FOR UNKNOWN INDICATION
     Route: 065

REACTIONS (6)
  - Plicated tongue [Unknown]
  - Weight decreased [Unknown]
  - Gingival pain [Unknown]
  - Glossodynia [Unknown]
  - Ageusia [Unknown]
  - Blindness unilateral [Unknown]
